FAERS Safety Report 16346526 (Version 2)
Quarter: 2019Q2

REPORT INFORMATION
  Report Type: Spontaneous
  Country: PT (occurrence: PT)
  Receive Date: 20190523
  Receipt Date: 20190607
  Transmission Date: 20190711
  Serious: Yes (Hospitalization, Other)
  Sender: FDA-Public Use
  Company Number: PHHY2019PT113511

PATIENT
  Age: 37 Year
  Sex: Female

DRUGS (1)
  1. AMOXICILLIN + CLAVULANATE POTASSIUM [Suspect]
     Active Substance: AMOXICILLIN\CLAVULANATE POTASSIUM
     Indication: MASTITIS
     Dosage: UNK
     Route: 065

REACTIONS (10)
  - Procedural hypotension [Recovered/Resolved]
  - Peripartum cardiomyopathy [Recovered/Resolved]
  - Hypotension [Unknown]
  - Vomiting [Recovered/Resolved]
  - Dilatation ventricular [Recovering/Resolving]
  - Product use in unapproved indication [Unknown]
  - Metabolic acidosis [Recovered/Resolved]
  - Mitral valve incompetence [Recovering/Resolving]
  - Sepsis [Recovered/Resolved]
  - Maternal exposure during breast feeding [Unknown]
